FAERS Safety Report 9103940 (Version 2)
Quarter: 2013Q1

REPORT INFORMATION
  Report Type: Spontaneous
  Country: US (occurrence: US)
  Receive Date: 20130219
  Receipt Date: 20130228
  Transmission Date: 20140127
  Serious: Yes (Other)
  Sender: FDA-Public Use
  Company Number: US-PFIZER INC-2013061695

PATIENT
  Age: 43 Year
  Sex: Female

DRUGS (4)
  1. GABAPENTIN [Suspect]
     Indication: BACK PAIN
     Dosage: UNK
     Dates: start: 2012
  2. GABAPENTIN [Suspect]
     Dosage: 1200 MG, 1X/DAY
     Dates: start: 2012, end: 2012
  3. LYRICA [Suspect]
     Indication: BACK PAIN
     Dosage: 75 MG, 3X/DAY
     Dates: start: 2012, end: 2012
  4. VALIUM [Concomitant]
     Indication: ANXIETY
     Dosage: UNK, AS NEEDED

REACTIONS (5)
  - Suicidal ideation [Recovered/Resolved]
  - Depression [Recovered/Resolved]
  - Asthenia [Recovered/Resolved]
  - Pain [Recovered/Resolved]
  - Drug ineffective [Unknown]
